FAERS Safety Report 4652667-0 (Version None)
Quarter: 2005Q2

REPORT INFORMATION
  Report Type: 
  Country: None (occurrence: None)
  Receive Date: 20050502
  Receipt Date: 20050419
  Transmission Date: 20051028
  Serious: Yes (Disabling)
  Sender: FDA-Public Use
  Company Number: 2005063762

PATIENT
  Age: 5 Year
  Sex: Female
  Weight: 11.7 kg

DRUGS (1)
  1. GENOTROPIN [Suspect]
     Indication: HYPOPITUITARISM
     Dosage: (10 I.U. WEEKLY), SUBCUTANEOUS
     Route: 058
     Dates: start: 19970613

REACTIONS (3)
  - MACULAR OEDEMA [None]
  - RETINAL OEDEMA [None]
  - VISUAL ACUITY REDUCED [None]
